FAERS Safety Report 7508001-1 (Version None)
Quarter: 2011Q2

REPORT INFORMATION
  Report Type: 
  Country: None (occurrence: None)
  Receive Date: 20110527
  Receipt Date: 20110415
  Transmission Date: 20111010
  Serious: No
  Sender: FDA-Public Use
  Company Number: US-MYLANLABS-2010S1005268

PATIENT
  Age: 24 Year
  Sex: Female
  Weight: 55 kg

DRUGS (1)
  1. LEVETIRACETAM [Suspect]
     Indication: DRUG LEVEL
     Route: 048
     Dates: start: 20100320, end: 20100320

REACTIONS (1)
  - DRUG EXPOSURE DURING PREGNANCY [None]
